FAERS Safety Report 6274897-7 (Version None)
Quarter: 2009Q3

REPORT INFORMATION
  Report Type: 
  Country: None (occurrence: None)
  Receive Date: 20090721
  Receipt Date: 20080707
  Transmission Date: 20100115
  Serious: Yes (Hospitalization, Other)
  Sender: FDA-Public Use
  Company Number: US-ASTRAZENECA-2006UW22960

PATIENT
  Age: 15524 Day
  Sex: Female
  Weight: 91.2 kg

DRUGS (27)
  1. SEROQUEL [Suspect]
     Indication: SCHIZOPHRENIA
     Dosage: 25 MG, 100 MG
     Route: 048
     Dates: start: 20020101
  2. SEROQUEL [Suspect]
     Indication: DEPRESSION
     Dosage: 25 MG, 100 MG
     Route: 048
     Dates: start: 20020101
  3. SEROQUEL [Suspect]
     Indication: STRESS
     Dosage: 25 MG, 100 MG
     Route: 048
     Dates: start: 20020101
  4. SEROQUEL [Suspect]
     Indication: ANXIETY
     Dosage: 25 MG, 100 MG
     Route: 048
     Dates: start: 20020101
  5. SEROQUEL [Suspect]
     Indication: SLEEP DISORDER
     Dosage: 25 MG, 100 MG
     Route: 048
     Dates: start: 20020101
  6. SEROQUEL [Suspect]
     Route: 048
     Dates: start: 20020101
  7. SEROQUEL [Suspect]
     Route: 048
     Dates: start: 20020101
  8. SEROQUEL [Suspect]
     Route: 048
     Dates: start: 20020101
  9. SEROQUEL [Suspect]
     Route: 048
     Dates: start: 20020101
  10. SEROQUEL [Suspect]
     Route: 048
     Dates: start: 20020101
  11. SEROQUEL [Suspect]
     Dosage: 75MG -700MG
     Route: 048
     Dates: start: 20021212
  12. SEROQUEL [Suspect]
     Dosage: 75MG -700MG
     Route: 048
     Dates: start: 20021212
  13. SEROQUEL [Suspect]
     Dosage: 75MG -700MG
     Route: 048
     Dates: start: 20021212
  14. SEROQUEL [Suspect]
     Dosage: 75MG -700MG
     Route: 048
     Dates: start: 20021212
  15. SEROQUEL [Suspect]
     Dosage: 75MG -700MG
     Route: 048
     Dates: start: 20021212
  16. TRAZODONE [Concomitant]
     Route: 048
     Dates: start: 20031015
  17. LEXAPRO [Concomitant]
     Route: 048
     Dates: start: 20040112
  18. XANAX [Concomitant]
     Route: 048
     Dates: start: 20060123
  19. SINGULAIR [Concomitant]
     Route: 048
     Dates: start: 20020201
  20. REMERON [Concomitant]
     Route: 048
     Dates: start: 20020730
  21. CHLORPROMAZINE [Concomitant]
     Route: 048
  22. PREMARIN [Concomitant]
     Route: 048
     Dates: start: 20020820
  23. TOPROL-XL [Concomitant]
     Route: 048
     Dates: start: 20020730
  24. VISTARIL [Concomitant]
     Dosage: 50MG -75MG
     Route: 048
     Dates: start: 20020820
  25. SYNTHROID [Concomitant]
     Route: 048
     Dates: start: 20040112
  26. DILANTIN [Concomitant]
     Dosage: 40MG - 100MG
     Route: 048
     Dates: start: 20020730
  27. PREDNISONE TAB [Concomitant]
     Route: 048
     Dates: start: 20060123

REACTIONS (2)
  - DIABETES MELLITUS [None]
  - NEUROPATHY PERIPHERAL [None]
